FAERS Safety Report 24593484 (Version 1)
Quarter: 2024Q4

REPORT INFORMATION
  Report Type: Report from Study
  Country: NL (occurrence: NL)
  Receive Date: 20241108
  Receipt Date: 20241108
  Transmission Date: 20250115
  Serious: Yes (Hospitalization)
  Sender: BIOVITRUM
  Company Number: NL-AstraZeneca-CH-00738406A

PATIENT
  Age: 32 Week
  Sex: Male
  Weight: 6.41 kg

DRUGS (2)
  1. SYNAGIS [Suspect]
     Active Substance: PALIVIZUMAB
     Indication: Product used for unknown indication
     Dosage: 15 MILLIGRAM/KILOGRAM, QMONTH
     Route: 030
     Dates: start: 20240807
  2. FERROFUMARAAT SUSPENSIE [Concomitant]
     Indication: Product used for unknown indication

REACTIONS (1)
  - Nasopharyngitis [Unknown]
